FAERS Safety Report 24634596 (Version 2)
Quarter: 2024Q4

REPORT INFORMATION
  Report Type: Spontaneous
  Country: BR (occurrence: BR)
  Receive Date: 20241119
  Receipt Date: 20241211
  Transmission Date: 20250115
  Serious: Yes (Other)
  Sender: Phathom Pharmaceuticals
  Company Number: BR-PHATHOM PHARMACEUTICALS INC.-2024PHT01289

PATIENT
  Age: 73 Year
  Sex: Female

DRUGS (3)
  1. VONOPRAZAN FUMARATE [Suspect]
     Active Substance: VONOPRAZAN FUMARATE
     Indication: Ulcer
     Dosage: UNK
     Route: 065
  2. VONOPRAZAN FUMARATE [Suspect]
     Active Substance: VONOPRAZAN FUMARATE
     Indication: Hiatus hernia
     Dosage: UNK
     Route: 065
  3. VONOPRAZAN FUMARATE [Suspect]
     Active Substance: VONOPRAZAN FUMARATE
     Indication: Gastrooesophageal reflux disease

REACTIONS (5)
  - Immunodeficiency [Unknown]
  - Gastrointestinal disorder [Unknown]
  - Pneumonia [Unknown]
  - Incorrect product administration duration [Unknown]
  - Illness [Unknown]
